FAERS Safety Report 6042873-5 (Version None)
Quarter: 2009Q1

REPORT INFORMATION
  Report Type: 
  Country: None (occurrence: None)
  Receive Date: 20090119
  Receipt Date: 20081015
  Transmission Date: 20090719
  Serious: Yes (Hospitalization)
  Sender: FDA-Public Use
  Company Number: GB-ABBOTT-09P-167-0498000-00

PATIENT
  Age: 38 Year
  Sex: Male

DRUGS (4)
  1. ERYTHROMYCIN [Suspect]
     Indication: EAR INFECTION
     Dates: start: 20080929, end: 20081001
  2. CODEINE PHOSPHATE [Concomitant]
     Indication: EAR INFECTION
  3. IBUPROFEN [Concomitant]
     Indication: EAR INFECTION
  4. EAR DROPS [Concomitant]
     Indication: DRUG USE FOR UNKNOWN INDICATION
     Dates: start: 20080829

REACTIONS (3)
  - ABDOMINAL PAIN [None]
  - JAUNDICE CHOLESTATIC [None]
  - VOMITING [None]
